FAERS Safety Report 16003743 (Version 1)
Quarter: 2019Q1

REPORT INFORMATION
  Report Type: Spontaneous
  Country: DK (occurrence: DK)
  Receive Date: 20190226
  Receipt Date: 20190226
  Transmission Date: 20190418
  Serious: Yes (Other)
  Sender: FDA-Public Use
  Company Number: DK-TEVA-2019-DK-1016541

PATIENT
  Age: 45 Year
  Sex: Female

DRUGS (1)
  1. ENALAPRIL [Suspect]
     Active Substance: ENALAPRIL
     Indication: HYPERTENSION
     Dosage: HAD BEEN RECEIVING FOR THE LAST 6 MONTHS
     Route: 065

REACTIONS (1)
  - Intestinal angioedema [Recovered/Resolved]
